FAERS Safety Report 10226456 (Version 2)
Quarter: 2014Q2

REPORT INFORMATION
  Report Type: Spontaneous
  Country: US (occurrence: US)
  Receive Date: 20140609
  Receipt Date: 20140609
  Transmission Date: 20141212
  Serious: No
  Sender: FDA-Public Use
  Company Number: US-AMGEN INC.-USASP2013059222

PATIENT
  Age: 66 Year
  Sex: Female
  Weight: 90.7 kg

DRUGS (19)
  1. PROCRIT [Suspect]
     Indication: AMYLOIDOSIS
     Dosage: 40000 UNIT, QWK
     Route: 058
     Dates: start: 20130813
  2. CHEMOTHERAPEUTICS [Concomitant]
     Dosage: UNK
  3. ACTOS [Concomitant]
     Dosage: 30 MG, QD
     Dates: start: 20130513
  4. GLIMEPIRIDE [Concomitant]
     Dosage: 1 MG, UNK
  5. LISINOPRIL HCTZ [Concomitant]
     Dosage: 20-12.5 MG BID
  6. LIPITOR [Concomitant]
     Dosage: 40 MG, QD
  7. ACYCLOVIR                          /00587301/ [Concomitant]
     Dosage: 200 MG, BID
  8. ASPIRIN [Concomitant]
     Dosage: 81 MG, QD
  9. TORSEMIDE [Concomitant]
     Dosage: 20 MG, BID
  10. POTASSIUM [Concomitant]
     Dosage: 20 MEQ, QD
  11. LIMBREL [Concomitant]
     Indication: INFLAMMATION
     Dosage: 500 MG, UNK
  12. DEXAMETHASONE [Concomitant]
     Dosage: 4 MG, UNK
  13. CYTOXAN [Concomitant]
     Dosage: 50 MG, UNK
     Dates: start: 20130418
  14. VITAMIN C                          /00008001/ [Concomitant]
     Dosage: 500 MG, QD
  15. VITAMIN B-12 [Concomitant]
     Dosage: 250 MG, UNK
  16. VITAMIN D3 [Concomitant]
     Dosage: 1000 IU, QD
  17. OMEGA 3                            /01333901/ [Concomitant]
     Dosage: 300 UNK, QD
  18. PROBIOTIC                          /06395501/ [Concomitant]
     Dosage: UNK
  19. MULTIVITAMIN                       /00097801/ [Concomitant]
     Dosage: UNK

REACTIONS (1)
  - Blood glucose increased [Recovered/Resolved]
